FAERS Safety Report 16001440 (Version 1)
Quarter: 2019Q1

REPORT INFORMATION
  Report Type: Spontaneous
  Country: US (occurrence: US)
  Receive Date: 20190225
  Receipt Date: 20190225
  Transmission Date: 20190418
  Serious: No
  Sender: FDA-Public Use
  Company Number: US-SUNOVION-2019SUN000714

PATIENT
  Age: 55 Year
  Weight: 39.46 kg

DRUGS (11)
  1. SYMBICORT [Concomitant]
     Active Substance: BUDESONIDE\FORMOTEROL FUMARATE DIHYDRATE
     Dosage: 80-4.5 MCG/ACT INHALE 2 PUFFS TWICE DAILY
     Route: 055
     Dates: start: 20170907
  2. ZOLEDRONIC ACID ACTAVIS [Concomitant]
     Active Substance: ZOLEDRONIC ACID
     Dosage: 5MG/100 ML INTRAVENOUS SOLUTION
     Route: 042
     Dates: start: 20180517
  3. CENTRUM SILVER +50 [Concomitant]
     Dosage: UNK
     Route: 065
     Dates: start: 20140618
  4. VITAMIN B COMPLEX COX [Concomitant]
     Dosage: UNK
     Route: 065
     Dates: start: 20170517
  5. SUPREP BOWEL PREP [Concomitant]
     Active Substance: MAGNESIUM SULFATE\POTASSIUM SULFATE\SODIUM SULFATE
     Dosage: 17.5-3.13-1.6 GM/177ML
     Route: 065
     Dates: start: 20180703
  6. PNEUMOVAX 23 [Concomitant]
     Active Substance: PNEUMOCOCCAL VACCINE, POLYVALENT 23
     Dosage: 25 MCG/0.5 ML INJECTION
     Route: 030
     Dates: start: 20181207, end: 20181207
  7. LONHALA MAGNAIR [Suspect]
     Active Substance: GLYCOPYRROLATE
     Dosage: 25 MCG/ML BID (25 MCG BID)
     Route: 055
     Dates: start: 20190208
  8. CALCIUM ACETATE. [Concomitant]
     Active Substance: CALCIUM ACETATE
     Dosage: 500 MG, QD
     Route: 065
     Dates: start: 20170109
  9. PRAVASTATIN ACCORD [Concomitant]
     Active Substance: PRAVASTATIN
     Dosage: UNK
     Route: 065
     Dates: start: 20170907
  10. PROAIR HFA [Concomitant]
     Active Substance: ALBUTEROL SULFATE
     Dosage: 108 (90 BASE) MCG/ACT, 2 PUFFS EVERY 4-6 HOURS AS NEEDED
     Route: 055
     Dates: start: 20170619
  11. PRAVASTATIN ACCORD [Concomitant]
     Active Substance: PRAVASTATIN
     Dosage: 20 MG, QD (1 TABLET AT BEDTIME)
     Route: 048
     Dates: start: 20180810

REACTIONS (1)
  - Dyspnoea [Unknown]

NARRATIVE: CASE EVENT DATE: 20190214
